FAERS Safety Report 4583536-2 (Version None)
Quarter: 2005Q1

REPORT INFORMATION
  Report Type: 
  Country: None (occurrence: None)
  Receive Date: 20050211
  Receipt Date: 20050127
  Transmission Date: 20050727
  Serious: Yes (Death, Hospitalization, Other)
  Sender: FDA-Public Use
  Company Number: 2005BI001807

PATIENT
  Age: 66 Year
  Sex: Female

DRUGS (5)
  1. ZEVALIN [Suspect]
     Indication: NON-HODGKIN'S LYMPHOMA
     Dosage: 1X; IV
     Route: 042
     Dates: start: 20041101, end: 20041101
  2. ZEVALIN [Suspect]
     Indication: NON-HODGKIN'S LYMPHOMA
     Dosage: 1X; IV
     Route: 042
     Dates: start: 20041118, end: 20041118
  3. CYCLOPHOSPHAMIDE [Concomitant]
  4. GRANULOCYTE COLONY [Concomitant]
  5. STIMULATING FACTOR [Concomitant]

REACTIONS (5)
  - ANURIA [None]
  - DIALYSIS [None]
  - NEUTROPHIL COUNT DECREASED [None]
  - SEPTIC SHOCK [None]
  - THROMBOCYTOPENIA [None]
